FAERS Safety Report 20804443 (Version 2)
Quarter: 2022Q2

REPORT INFORMATION
  Report Type: Spontaneous
  Country: CN (occurrence: CN)
  Receive Date: 20220509
  Receipt Date: 20220523
  Transmission Date: 20220720
  Serious: Yes (Other)
  Sender: FDA-Public Use
  Company Number: CN-PFIZER INC-202101760724

PATIENT
  Age: 65 Year
  Sex: Male
  Weight: 70 kg

DRUGS (4)
  1. VORICONAZOLE [Suspect]
     Active Substance: VORICONAZOLE
     Indication: Bacterial infection
     Dosage: 0.2 G, 2X/DAY
     Route: 041
     Dates: start: 20211129, end: 20211130
  2. VORICONAZOLE [Suspect]
     Active Substance: VORICONAZOLE
     Indication: Fungal infection
  3. VORICONAZOLE [Suspect]
     Active Substance: VORICONAZOLE
     Indication: Infection
     Dosage: UNK (ORAL CAPSULE)
     Route: 048
     Dates: start: 20211201, end: 20211202
  4. LEVOFLOXACIN/SODIUM CHLORIDE [Concomitant]
     Indication: Infection
     Dosage: 0.5 G, 1X/DAY
     Route: 041
     Dates: start: 20211127, end: 20211130

REACTIONS (6)
  - Altered state of consciousness [Recovering/Resolving]
  - Mental disorder [Recovering/Resolving]
  - Thinking abnormal [Recovering/Resolving]
  - Euphoric mood [Recovering/Resolving]
  - Psychomotor hyperactivity [Recovering/Resolving]
  - Agitation [Recovering/Resolving]

NARRATIVE: CASE EVENT DATE: 20211130
